FAERS Safety Report 8862535 (Version 1)
Quarter: 2012Q4

REPORT INFORMATION
  Report Type: 
  Country: ES (occurrence: ES)
  Receive Date: 20121026
  Receipt Date: 20121026
  Transmission Date: 20130627
  Serious: Yes (Other)
  Sender: FDA-Public Use
  Company Number: ES-JNJFOC-20121009200

PATIENT
  Age: 27 Year
  Sex: Female
  Weight: 88 kg

DRUGS (4)
  1. RISPERDAL [Suspect]
     Indication: INSOMNIA
     Dosage: at night
     Route: 048
     Dates: start: 20120923, end: 20121011
  2. LORAZEPAM [Concomitant]
     Indication: INSOMNIA
     Route: 065
  3. DEPRAX [Concomitant]
     Indication: INSOMNIA
     Route: 065
  4. ALPRAZOLAM [Concomitant]
     Indication: INSOMNIA
     Route: 065

REACTIONS (6)
  - Hallucination [Recovered/Resolved]
  - Dizziness [Unknown]
  - Sensation of heaviness [Unknown]
  - Weight increased [Not Recovered/Not Resolved]
  - Mydriasis [None]
  - Feeling abnormal [None]
